FAERS Safety Report 7951225-X (Version None)
Quarter: 2011Q4

REPORT INFORMATION
  Report Type: 
  Country: None (occurrence: None)
  Receive Date: 20111201
  Receipt Date: 20111129
  Transmission Date: 20120403
  Serious: Yes (Death, Hospitalization, Other)
  Sender: FDA-Public Use
  Company Number: PHHY2011CA098465

PATIENT
  Sex: Male

DRUGS (5)
  1. BETA BLOCKING AGENTS [Concomitant]
  2. ANGIOTENSIN II [Concomitant]
  3. ALISKIREN [Suspect]
     Indication: HYPERTENSION
     Dosage: 300 MG, UNK
     Route: 048
     Dates: start: 20100128, end: 20111101
  4. DIURETICS [Concomitant]
  5. ALPHA BLOCKER [Concomitant]

REACTIONS (5)
  - URINE ALBUMIN/CREATININE RATIO INCREASED [None]
  - BLOOD PRESSURE INCREASED [None]
  - CEREBROVASCULAR ACCIDENT [None]
  - SYNCOPE [None]
  - DEATH [None]
